FAERS Safety Report 5782815-0 (Version None)
Quarter: 2008Q2

REPORT INFORMATION
  Report Type: 
  Country: None (occurrence: None)
  Receive Date: 20080624
  Receipt Date: 20080604
  Transmission Date: 20081010
  Serious: No
  Sender: FDA-Public Use
  Company Number: US-BAYER-200825286NA

PATIENT
  Age: 23 Year
  Sex: Female

DRUGS (1)
  1. YAZ [Suspect]
     Indication: CONTRACEPTION
     Route: 048
     Dates: start: 20080401, end: 20080601

REACTIONS (5)
  - FATIGUE [None]
  - HEADACHE [None]
  - NAUSEA [None]
  - ORAL INTAKE REDUCED [None]
  - VULVOVAGINAL MYCOTIC INFECTION [None]
